FAERS Safety Report 25498698 (Version 3)
Quarter: 2025Q3

REPORT INFORMATION
  Report Type: Spontaneous
  Country: EU (occurrence: EU)
  Receive Date: 20250701
  Receipt Date: 20250905
  Transmission Date: 20251021
  Serious: No
  Sender: EMERGENT BIOSOLUTIONS
  Company Number: EU-EMERGENT BIOSOLUTIONS-25000073

PATIENT
  Age: 15 Year
  Sex: Male
  Weight: 68 kg

DRUGS (5)
  1. TEMBEXA [Suspect]
     Active Substance: BRINCIDOFOVIR
     Indication: Parvovirus B19 infection
     Route: 048
     Dates: start: 20250605
  2. TEMBEXA [Suspect]
     Active Substance: BRINCIDOFOVIR
     Route: 065
     Dates: start: 2025
  3. TEMBEXA [Suspect]
     Active Substance: BRINCIDOFOVIR
     Route: 065
     Dates: start: 2025
  4. Immunoglobulin [Concomitant]
     Indication: Parvovirus B19 infection
     Route: 042
     Dates: start: 20241011, end: 20241012
  5. Immunoglobulin [Concomitant]
     Route: 042

REACTIONS (1)
  - Off label use [Unknown]

NARRATIVE: CASE EVENT DATE: 20250605
